FAERS Safety Report 5585750-6 (Version None)
Quarter: 2007Q4

REPORT INFORMATION
  Report Type: 
  Country: None (occurrence: None)
  Receive Date: 20071204
  Receipt Date: 20070612
  Transmission Date: 20080405
  Serious: Yes (Other)
  Sender: FDA-Public Use
  Company Number: 07-055

PATIENT
  Age: 27 Year
  Sex: Female
  Weight: 56.6996 kg

DRUGS (2)
  1. IBUPROFEN TABLETS [Suspect]
     Indication: INFLAMMATION
     Dosage: 1 TABLETS 3 TIMES DAILY
  2. BIRTH CONTROL PILLS [Concomitant]

REACTIONS (1)
  - ERYTHEMA [None]
